FAERS Safety Report 7921369-7 (Version None)
Quarter: 2011Q4

REPORT INFORMATION
  Report Type: 
  Country: None (occurrence: None)
  Receive Date: 20111117
  Receipt Date: 20111107
  Transmission Date: 20120403
  Serious: Yes (Other)
  Sender: FDA-Public Use
  Company Number: BR-ROCHE-1013482

PATIENT
  Sex: Female

DRUGS (11)
  1. INSULIN [Concomitant]
  2. CHLORTHALIDONE [Concomitant]
  3. ALBUTEROL SULFATE AUTOHALER [Concomitant]
  4. ALENIA (BRAZIL) [Concomitant]
  5. METFORMIN HCL [Concomitant]
  6. ENALAPRIL MALEATE [Concomitant]
  7. BUDESONIDE [Concomitant]
  8. PREDNISONE TAB [Concomitant]
  9. XOLAIR [Suspect]
     Indication: ASTHMA
     Dates: start: 20110701
  10. XOLAIR [Suspect]
     Dates: start: 20111027
  11. GLYBURIDE [Concomitant]

REACTIONS (1)
  - ASTHMA [None]
